FAERS Safety Report 18479140 (Version 1)
Quarter: 2020Q4

REPORT INFORMATION
  Report Type: Spontaneous
  Country: DE (occurrence: DE)
  Receive Date: 20201109
  Receipt Date: 20201109
  Transmission Date: 20210114
  Serious: Yes (Death, Other)
  Sender: FDA-Public Use
  Company Number: DE-MICRO LABS LIMITED-ML2020-03304

PATIENT
  Age: 24 Year
  Sex: Male

DRUGS (13)
  1. METHAMPHETAMINE [Suspect]
     Active Substance: METHAMPHETAMINE
  2. METHODRONE [Suspect]
     Active Substance: MEPHEDRONE
  3. DESMETHYLVENLAFAXINE [Suspect]
     Active Substance: N-DESMETHYLVENLAFAXINE
  4. CAFFEINE CITRATE. [Suspect]
     Active Substance: CAFFEINE CITRATE
  5. ALCOHOL. [Suspect]
     Active Substance: ALCOHOL
  6. AMPHETAMINE [Suspect]
     Active Substance: AMPHETAMINE
  7. PMMA (PARAMETHOXYMETHAMPHETAMINE) [Suspect]
     Active Substance: 4-METHOXYMETHAMPHETAMINE
  8. PMA (PARA-METHOXYAMPHETAMINE) [Suspect]
     Active Substance: 4-METHOXYAMPHETAMINE
  9. PMEA (PARA-METHOXY-N-ETHYLAMPHETAMINE) [Suspect]
     Active Substance: 4-METHOXYMETHAMPHETAMINE
  10. MDMA (3,4 METHYLENEDIOXYMETHAMPHETAMINE) [Suspect]
     Active Substance: MIDOMAFETAMINE
  11. METHYLONE [Suspect]
     Active Substance: METHYLPREDNISOLONE
  12. MDA (3,4-METHYLENEDIOXYAMPHETAMINE) [Suspect]
     Active Substance: TENAMFETAMINE
  13. MDEA (3,4-METHYLENEDIOXY-N-ETHYLAMPHETAMINE) [Suspect]
     Active Substance: METHYLENEDIOXYETHAMPHETAMINE

REACTIONS (2)
  - Toxicity to various agents [Fatal]
  - Drug abuse [Unknown]
